FAERS Safety Report 5099689-6 (Version None)
Quarter: 2006Q3

REPORT INFORMATION
  Report Type: 
  Country: None (occurrence: None)
  Receive Date: 20060908
  Receipt Date: 20060829
  Transmission Date: 20061208
  Serious: Yes (Hospitalization)
  Sender: FDA-Public Use
  Company Number: DE-ROCHE-461129

PATIENT
  Age: 49 Year
  Sex: Female

DRUGS (1)
  1. BONIVA [Suspect]
     Indication: OSTEOPOROSIS PROPHYLAXIS
     Route: 065

REACTIONS (5)
  - BLOOD CREATINE PHOSPHOKINASE INCREASED [None]
  - DRUG INTOLERANCE [None]
  - PAIN [None]
  - POLYMYALGIA RHEUMATICA [None]
  - RED BLOOD CELL SEDIMENTATION RATE DECREASED [None]
